FAERS Safety Report 24701183 (Version 2)
Quarter: 2024Q4

REPORT INFORMATION
  Report Type: Spontaneous
  Country: IN (occurrence: IN)
  Receive Date: 20241205
  Receipt Date: 20241211
  Transmission Date: 20250114
  Serious: Yes (Other)
  Sender: MYLAN
  Company Number: IN-MYLANLABS-2024M1109288

PATIENT
  Age: 15 Year
  Sex: Male

DRUGS (2)
  1. GEMCITABINE [Suspect]
     Active Substance: GEMCITABINE
     Indication: Hodgkin^s disease
     Dosage: UNK, CYCLE {RECEIVED 4 CYCLES}
     Route: 065
  2. VINORELBINE [Suspect]
     Active Substance: VINORELBINE TARTRATE
     Indication: Hodgkin^s disease
     Dosage: UNK, CYCLE {RECEIVED 4 CYCLES}
     Route: 065

REACTIONS (3)
  - Drug ineffective [Unknown]
  - Disease progression [Unknown]
  - Off label use [Unknown]
